FAERS Safety Report 11999598 (Version 1)
Quarter: 2016Q1

REPORT INFORMATION
  Report Type: Report from Study
  Country: US (occurrence: US)
  Receive Date: 20160204
  Receipt Date: 20160204
  Transmission Date: 20160526
  Serious: Yes (Other)
  Sender: FDA-Public Use
  Company Number: US-ACCORD-037519

PATIENT
  Age: 8 Year
  Sex: Male

DRUGS (10)
  1. DEXTROMETHORPHAN [Concomitant]
     Active Substance: DEXTROMETHORPHAN
  2. ONDANSETRON [Concomitant]
     Active Substance: ONDANSETRON
  3. PARACETAMOL [Concomitant]
     Active Substance: ACETAMINOPHEN
  4. SULFAMETHOXAZOLE/TRIMETHOPRIM [Concomitant]
  5. CYTARABINE/CYTARABINE HYDROCHLORIDE/CYTARABINE OCFOSFATE [Concomitant]
  6. METHOTREXATE [Suspect]
     Active Substance: METHOTREXATE
     Indication: ACUTE LYMPHOCYTIC LEUKAEMIA
     Route: 037
  7. TIOGUANINE [Concomitant]
     Active Substance: THIOGUANINE ANHYDROUS
  8. VINCRISTINE [Concomitant]
     Active Substance: VINCRISTINE
  9. MACROGOL [Concomitant]
     Active Substance: POLYETHYLENE GLYCOLS
  10. POTASSIUM [Concomitant]
     Active Substance: POTASSIUM

REACTIONS (4)
  - Vomiting [Unknown]
  - Hypoaesthesia [Unknown]
  - Neurotoxicity [Unknown]
  - Headache [Unknown]
